FAERS Safety Report 19181412 (Version 2)
Quarter: 2021Q2

REPORT INFORMATION
  Report Type: Spontaneous
  Country: PL (occurrence: PL)
  Receive Date: 20210426
  Receipt Date: 20210517
  Transmission Date: 20210717
  Serious: Yes (Hospitalization, Other)
  Sender: FDA-Public Use
  Company Number: PL-NOVOPROD-804341

PATIENT
  Age: 33 Year
  Sex: Female
  Weight: 67 kg

DRUGS (11)
  1. INSULATARD HM [Suspect]
     Active Substance: INSULIN HUMAN
     Dosage: INCREASED 1106?108 UNITS DAY IN 3RD TRIMESTER
     Route: 058
  2. FEMIBION [CALCIUM PHOSPHATE DIBASIC;FERROUS SUCCINATE;MAGNESIUM HYDROX [Concomitant]
     Dosage: 1 TABLET DAILY
     Route: 048
  3. INSULATARD HM [Suspect]
     Active Substance: INSULIN HUMAN
     Dosage: INCREASED 1180?200 UNITS DAY
     Route: 058
  4. CLEXANE [Concomitant]
     Active Substance: ENOXAPARIN SODIUM
     Dosage: 0.4 MG, QD
     Route: 058
  5. POLFILIN [Concomitant]
     Active Substance: PENTOXIFYLLINE
     Dosage: 400 MG, BID
     Route: 048
  6. ACARD [ACETYLSALICYLIC ACID] [Concomitant]
     Active Substance: ASPIRIN
     Indication: PROPHYLAXIS
     Dosage: 150 MG, QD
     Route: 048
  7. NOVORAPID [Suspect]
     Active Substance: INSULIN ASPART
     Dosage: 98 IU, QD
     Route: 058
  8. INSULATARD HM [Suspect]
     Active Substance: INSULIN HUMAN
     Indication: TYPE 2 DIABETES MELLITUS
     Dosage: 16?20UNITS/DAY (TWICE DAILY) IN 1ST TRIMESTER
     Route: 058
  9. MAGNESIUM [Concomitant]
     Active Substance: MAGNESIUM
     Dosage: 1 TABLET DAILY
     Route: 065
  10. NOVORAPID [Suspect]
     Active Substance: INSULIN ASPART
     Dosage: INCREASED TO 180?200 UNITS/DAY
     Route: 058
  11. NOVORAPID [Suspect]
     Active Substance: INSULIN ASPART
     Indication: TYPE 2 DIABETES MELLITUS
     Dosage: 2?4 UNITS BEFORE THE MAIN
     Route: 065

REACTIONS (4)
  - Insulin resistance [Not Recovered/Not Resolved]
  - Hyperglycaemia [Unknown]
  - Oligohydramnios [Unknown]
  - Maternal exposure during pregnancy [Not Recovered/Not Resolved]
